FAERS Safety Report 12971178 (Version 3)
Quarter: 2017Q2

REPORT INFORMATION
  Report Type: Spontaneous
  Country: US (occurrence: US)
  Receive Date: 20161123
  Receipt Date: 20170505
  Transmission Date: 20170830
  Serious: Yes (Other)
  Sender: FDA-Public Use
  Company Number: US-JAZZ-2016-US-019183

PATIENT
  Sex: Female

DRUGS (20)
  1. XYREM [Suspect]
     Active Substance: SODIUM OXYBATE
     Dosage: 4.5 G, BID
     Route: 048
     Dates: start: 201411, end: 2015
  2. FISH OIL [Concomitant]
     Active Substance: FISH OIL
  3. NUVIGIL [Concomitant]
     Active Substance: ARMODAFINIL
  4. FOLIC ACID. [Concomitant]
     Active Substance: FOLIC ACID
  5. XYREM [Suspect]
     Active Substance: SODIUM OXYBATE
     Dosage: 4.5 G, BID
     Route: 048
     Dates: start: 201202, end: 2012
  6. SINGULAIR [Concomitant]
     Active Substance: MONTELUKAST SODIUM
  7. GINSENG                            /01199605/ [Concomitant]
     Active Substance: ASIAN GINSENG
  8. XYREM [Suspect]
     Active Substance: SODIUM OXYBATE
     Indication: NARCOLEPSY
     Dosage: 2.25 G, BID
     Route: 048
     Dates: start: 201012
  9. ALLEGRA ALLERGY [Concomitant]
     Active Substance: FEXOFENADINE HYDROCHLORIDE
  10. VITAMIN D                          /00107901/ [Concomitant]
     Active Substance: ERGOCALCIFEROL
  11. CALCIUM CARBONATE. [Concomitant]
     Active Substance: CALCIUM CARBONATE
  12. ALLEGRA-D                          /01367401/ [Concomitant]
  13. FLAXSEED [Concomitant]
     Active Substance: FLAX SEED
  14. XYREM [Suspect]
     Active Substance: SODIUM OXYBATE
     Dosage: 4.5 G, BID
     Route: 048
     Dates: start: 201512
  15. SEASONIQUE [Concomitant]
     Active Substance: ETHINYL ESTRADIOL\LEVONORGESTREL
  16. XYREM [Suspect]
     Active Substance: SODIUM OXYBATE
     Indication: CATAPLEXY
     Dosage: 2.25 G, BID
     Route: 048
     Dates: start: 201109, end: 201202
  17. MULTIVITAMINS                      /00116001/ [Concomitant]
  18. RITALIN [Concomitant]
     Active Substance: METHYLPHENIDATE HYDROCHLORIDE
  19. VITAMIN B6 [Concomitant]
     Active Substance: PYRIDOXINE HYDROCHLORIDE
  20. MULTIVITAMIN AND MINERAL [Concomitant]

REACTIONS (3)
  - Chronic spontaneous urticaria [Unknown]
  - Idiopathic angioedema [Unknown]
  - Hypersensitivity [Not Recovered/Not Resolved]
